FAERS Safety Report 10649582 (Version 1)
Quarter: 2014Q4

REPORT INFORMATION
  Report Type: Spontaneous
  Country: PH (occurrence: None)
  Receive Date: 20141210
  Receipt Date: 20141210
  Transmission Date: 20150529
  Serious: Yes (Hospitalization)
  Sender: FDA-Public Use
  Company Number: PH-ZYDUS-005929

PATIENT
  Age: 66 Year
  Sex: Female

DRUGS (1)
  1. WARFARIN [Suspect]
     Active Substance: WARFARIN
     Route: 048

REACTIONS (7)
  - Respiratory alkalosis [None]
  - Heart rate abnormal [None]
  - Arrhythmia [None]
  - International normalised ratio increased [None]
  - Toxicity to various agents [None]
  - Upper airway obstruction [None]
  - Laryngeal haematoma [None]
